FAERS Safety Report 21435138 (Version 1)
Quarter: 2022Q4

REPORT INFORMATION
  Report Type: Spontaneous
  Country: CN (occurrence: CN)
  Receive Date: 20221010
  Receipt Date: 20221010
  Transmission Date: 20230113
  Serious: Yes (Death)
  Sender: FDA-Public Use
  Company Number: CN-ELI_LILLY_AND_COMPANY-CN202209013851

PATIENT
  Sex: Female

DRUGS (10)
  1. ALIMTA [Suspect]
     Active Substance: PEMETREXED DISODIUM
     Indication: Lung neoplasm malignant
     Dosage: 700 MG, SINGLE
     Route: 041
     Dates: start: 20220809, end: 20220809
  2. ALIMTA [Suspect]
     Active Substance: PEMETREXED DISODIUM
     Dosage: 700 MG, SINGLE
     Route: 041
     Dates: start: 20220923, end: 20220923
  3. CARBOPLATIN [Concomitant]
     Active Substance: CARBOPLATIN
     Indication: Lung neoplasm malignant
     Dosage: UNK UNK, UNKNOWN
     Route: 065
     Dates: start: 20220809
  4. BEVACIZUMAB [Concomitant]
     Active Substance: BEVACIZUMAB
     Indication: Lung neoplasm malignant
     Dosage: UNK
     Dates: start: 20220809, end: 20220809
  5. BEVACIZUMAB [Concomitant]
     Active Substance: BEVACIZUMAB
     Dosage: 600 MG, SINGLE
     Route: 041
     Dates: start: 20220923, end: 20220923
  6. SINTILIMAB [Concomitant]
     Active Substance: SINTILIMAB
     Indication: Lung neoplasm malignant
     Dosage: UNK
     Dates: start: 20220809, end: 20220809
  7. SINTILIMAB [Concomitant]
     Active Substance: SINTILIMAB
     Dosage: 0.2 G, SINGLE
     Route: 041
     Dates: start: 20220923, end: 20220923
  8. SODIUM CHLORIDE [Concomitant]
     Active Substance: SODIUM CHLORIDE
     Indication: Medication dilution
     Dosage: 250 ML, SINGLE
     Route: 041
     Dates: start: 20220923, end: 20220923
  9. SODIUM CHLORIDE [Concomitant]
     Active Substance: SODIUM CHLORIDE
     Dosage: 250 ML, SINGLE
     Route: 041
     Dates: start: 20220923, end: 20220923
  10. SODIUM CHLORIDE [Concomitant]
     Active Substance: SODIUM CHLORIDE
     Dosage: 100 ML, SINGLE
     Route: 041
     Dates: start: 20220923, end: 20220923

REACTIONS (1)
  - Myelosuppression [Fatal]
